FAERS Safety Report 15884451 (Version 3)
Quarter: 2019Q1

REPORT INFORMATION
  Report Type: Spontaneous
  Country: US (occurrence: US)
  Receive Date: 20190129
  Receipt Date: 20190211
  Transmission Date: 20190417
  Serious: Yes (Other)
  Sender: FDA-Public Use
  Company Number: US-PFIZER INC-2019037752

PATIENT
  Age: 5 Decade
  Sex: Male

DRUGS (7)
  1. TIGECYCLINE. [Concomitant]
     Active Substance: TIGECYCLINE
     Indication: KLEBSIELLA INFECTION
     Dosage: UNK
  2. MEROPENEM. [Suspect]
     Active Substance: MEROPENEM
     Indication: PANCREATITIS ACUTE
  3. POLYMYXIN B. [Suspect]
     Active Substance: POLYMYXIN B
     Indication: PANCREATITIS ACUTE
  4. TIGECYCLINE. [Concomitant]
     Active Substance: TIGECYCLINE
     Indication: PANCREATITIS ACUTE
  5. MEROPENEM. [Suspect]
     Active Substance: MEROPENEM
     Indication: KLEBSIELLA INFECTION
  6. POLYMYXIN B. [Suspect]
     Active Substance: POLYMYXIN B
     Indication: KLEBSIELLA INFECTION
     Dosage: UNK
  7. MEROPENEM. [Suspect]
     Active Substance: MEROPENEM
     Indication: EVIDENCE BASED TREATMENT
     Dosage: UNK

REACTIONS (1)
  - Nephropathy toxic [Unknown]
